FAERS Safety Report 5218606-9 (Version None)
Quarter: 2007Q1

REPORT INFORMATION
  Report Type: 
  Country: None (occurrence: None)
  Receive Date: 20061130
  Receipt Date: 20060720
  Transmission Date: 20070707
  Serious: Yes (Hospitalization)
  Sender: FDA-Public Use
  Company Number: US200606002820

PATIENT
  Sex: Male
  Weight: 99.8 kg

DRUGS (3)
  1. ZYPREXA [Suspect]
     Dates: start: 20001218, end: 20010101
  2. GLIPIZIDE [Concomitant]
  3. ROSIGLITAZONE [Concomitant]

REACTIONS (3)
  - AMNESIA [None]
  - DIABETES MELLITUS [None]
  - TREMOR [None]
